FAERS Safety Report 4663246-3 (Version None)
Quarter: 2005Q2

REPORT INFORMATION
  Report Type: 
  Country: None (occurrence: None)
  Receive Date: 20050511
  Receipt Date: 20050203
  Transmission Date: 20051028
  Serious: Yes (Other)
  Sender: FDA-Public Use
  Company Number: 389085

PATIENT
  Age: 58 Year
  Sex: Male

DRUGS (2)
  1. PEGASYS [Suspect]
     Indication: HEPATITIS C VIRUS
     Dosage: 180 MCG, 1 PER WEEK, SUBCUTANEOUS
     Route: 058
     Dates: start: 20041008, end: 20050326
  2. COPEGUS [Suspect]
     Indication: HEPATITIS C VIRUS
     Dosage: 200 MG, 4 PER DAY, ORAL
     Route: 048
     Dates: start: 20041008, end: 20050326

REACTIONS (14)
  - AMNESIA [None]
  - ANGER [None]
  - ARTHRITIS [None]
  - BACK PAIN [None]
  - CONDITION AGGRAVATED [None]
  - DEPRESSED MOOD [None]
  - DIARRHOEA [None]
  - FATIGUE [None]
  - HAIR COLOUR CHANGES [None]
  - HYPOTRICHOSIS [None]
  - INJECTION SITE HAEMORRHAGE [None]
  - PAIN [None]
  - WEIGHT DECREASED [None]
  - WHITE BLOOD CELL COUNT DECREASED [None]
